FAERS Safety Report 24247135 (Version 1)
Quarter: 2024Q3

REPORT INFORMATION
  Report Type: Spontaneous
  Country: FR (occurrence: FR)
  Receive Date: 20240826
  Receipt Date: 20240826
  Transmission Date: 20241016
  Serious: Yes (Hospitalization)
  Sender: TEVA
  Company Number: None

PATIENT
  Age: 19 Year
  Sex: Male
  Weight: 54 kg

DRUGS (1)
  1. METHOTREXATE [Suspect]
     Active Substance: METHOTREXATE
     Indication: Osteosarcoma
     Dosage: DOSAGE: 12 G/M^2
     Route: 042
     Dates: start: 20240726, end: 20240726

REACTIONS (2)
  - Acute kidney injury [Recovering/Resolving]
  - Drug clearance decreased [Recovering/Resolving]

NARRATIVE: CASE EVENT DATE: 20240727
